FAERS Safety Report 5401385-X (Version None)
Quarter: 2007Q3

REPORT INFORMATION
  Report Type: 
  Country: None (occurrence: None)
  Receive Date: 20070731
  Receipt Date: 20070725
  Transmission Date: 20080115
  Serious: Yes (Hospitalization)
  Sender: FDA-Public Use
  Company Number: DE-GENENTECH-212196

PATIENT
  Sex: Male
  Weight: 110 kg

DRUGS (6)
  1. RITUXAN [Suspect]
     Indication: CHRONIC LYMPHOCYTIC LEUKAEMIA
     Route: 042
     Dates: start: 20031215, end: 20040501
  2. FLUDARABINE PHOSPHATE [Suspect]
     Indication: CHRONIC LYMPHOCYTIC LEUKAEMIA
     Route: 042
     Dates: start: 20031215, end: 20040501
  3. CYCLOPHOSPHAMIDE [Suspect]
     Route: 042
     Dates: start: 20031215, end: 20040501
  4. NORVASC [Concomitant]
     Dosage: 5 MG, QD
  5. TRIAMTERENE AND HYDROCHLOROTHIAZIDE [Concomitant]
     Dosage: UNK, QD
  6. NEUPOGEN [Concomitant]
     Dosage: UNK, UNK

REACTIONS (1)
  - OESOPHAGEAL ULCER [None]
